FAERS Safety Report 5498925-1 (Version None)
Quarter: 2007Q4

REPORT INFORMATION
  Report Type: 
  Country: None (occurrence: None)
  Receive Date: 20071024
  Receipt Date: 20071024
  Transmission Date: 20080405
  Serious: Yes (Hospitalization, Other)
  Sender: FDA-Public Use
  Company Number: None

PATIENT
  Age: 30 Year
  Sex: Female
  Weight: 115.2136 kg

DRUGS (1)
  1. OVCON-35 [Suspect]

REACTIONS (3)
  - DEEP VEIN THROMBOSIS [None]
  - OVARIAN CYST [None]
  - PULMONARY EMBOLISM [None]
